FAERS Safety Report 10079854 (Version 1)
Quarter: 2014Q2

REPORT INFORMATION
  Report Type: Report from Study
  Country: US (occurrence: US)
  Receive Date: 20140415
  Receipt Date: 20140415
  Transmission Date: 20141212
  Serious: Yes (Hospitalization, Other)
  Sender: FDA-Public Use
  Company Number: US-ABBVIE-14P-163-1223373-00

PATIENT
  Sex: Male

DRUGS (1)
  1. HUMIRA [Suspect]
     Indication: CROHN^S DISEASE

REACTIONS (4)
  - Large intestinal obstruction [Recovered/Resolved]
  - Large intestinal stenosis [Recovered/Resolved]
  - Abdominal adhesions [Recovered/Resolved]
  - Enterococcal infection [Recovered/Resolved]
